FAERS Safety Report 7226067-3 (Version None)
Quarter: 2011Q1

REPORT INFORMATION
  Report Type: 
  Country: None (occurrence: None)
  Receive Date: 20110113
  Receipt Date: 20110105
  Transmission Date: 20110831
  Serious: Yes (Hospitalization, Other)
  Sender: FDA-Public Use
  Company Number: US-MERCK-1002USA02325

PATIENT
  Age: 60 Year
  Sex: Female
  Weight: 70 kg

DRUGS (6)
  1. CALCIUM (UNSPECIFIED) [Concomitant]
     Route: 065
  2. FOSAMAX [Suspect]
     Indication: OSTEOPENIA
     Route: 048
     Dates: start: 20000101, end: 20070601
  3. VITAMINS (UNSPECIFIED) [Concomitant]
     Route: 065
  4. FOSAMAX [Suspect]
     Indication: OSTEOPOROSIS
     Route: 048
     Dates: start: 20000101, end: 20070601
  5. EVISTA [Concomitant]
     Indication: OSTEOPOROSIS
     Route: 065
  6. ZANTAC [Concomitant]
     Indication: GASTROOESOPHAGEAL REFLUX DISEASE
     Route: 065

REACTIONS (43)
  - PLEURISY [None]
  - SINUS CONGESTION [None]
  - CHRONIC OBSTRUCTIVE PULMONARY DISEASE [None]
  - SKIN CANCER [None]
  - OSTEOPOROSIS [None]
  - FIBROMA [None]
  - TENDONITIS [None]
  - SINUSITIS [None]
  - MUSCULAR WEAKNESS [None]
  - BONE DENSITY DECREASED [None]
  - EAR PAIN [None]
  - MENIERE'S DISEASE [None]
  - CERUMEN IMPACTION [None]
  - COUGH [None]
  - ANXIETY [None]
  - HYPERLIPIDAEMIA [None]
  - HYPERCHOLESTEROLAEMIA [None]
  - CARDIOVASCULAR DISORDER [None]
  - FEMUR FRACTURE [None]
  - LUNG NEOPLASM [None]
  - MUSCLE STRAIN [None]
  - ROAD TRAFFIC ACCIDENT [None]
  - OSTEOARTHRITIS [None]
  - BRONCHITIS [None]
  - BRONCHITIS CHRONIC [None]
  - INTERVERTEBRAL DISC DEGENERATION [None]
  - FALL [None]
  - BLOOD POTASSIUM DECREASED [None]
  - BACK PAIN [None]
  - PAIN IN EXTREMITY [None]
  - SLEEP DISORDER [None]
  - MUSCLE SPASMS [None]
  - POST PROCEDURAL CONSTIPATION [None]
  - ACTINIC KERATOSIS [None]
  - TINNITUS [None]
  - LOW TURNOVER OSTEOPATHY [None]
  - ADHESION [None]
  - HAEMORRHAGIC ANAEMIA [None]
  - IRON DEFICIENCY ANAEMIA [None]
  - OROPHARYNGEAL PAIN [None]
  - LUMBAR SPINAL STENOSIS [None]
  - HYPOACUSIS [None]
  - INJURY [None]
